FAERS Safety Report 16160556 (Version 4)
Quarter: 2019Q2

REPORT INFORMATION
  Report Type: Report from Study
  Country: IT (occurrence: IT)
  Receive Date: 20190405
  Receipt Date: 20190622
  Transmission Date: 20190711
  Serious: Yes (Hospitalization)
  Sender: FDA-Public Use
  Company Number: IT-ROCHE-2297043

PATIENT
  Age: 51 Year
  Sex: Female

DRUGS (10)
  1. OCRELIZUMAB. [Suspect]
     Active Substance: OCRELIZUMAB
     Route: 042
     Dates: start: 20181004, end: 20190404
  2. OXYBUTYNIN. [Concomitant]
     Active Substance: OXYBUTYNIN CHLORIDE
     Route: 048
  3. MEROPENEM. [Concomitant]
     Active Substance: MEROPENEM
     Route: 065
  4. DOXYCYCLINE. [Concomitant]
     Active Substance: DOXYCYCLINE
     Route: 065
  5. OCRELIZUMAB. [Suspect]
     Active Substance: OCRELIZUMAB
     Indication: MULTIPLE SCLEROSIS
     Route: 042
     Dates: start: 20180312, end: 20181004
  6. LIORESAL [Concomitant]
     Active Substance: BACLOFEN
     Indication: MUSCLE SPASTICITY
     Route: 048
  7. VANCOMYCIN [Concomitant]
     Active Substance: VANCOMYCIN
     Route: 065
  8. INTERFERON BETA 1B [Concomitant]
     Active Substance: INTERFERON BETA-1B
     Route: 065
     Dates: start: 20000202, end: 20020202
  9. LANSOX [Concomitant]
     Active Substance: LANSOPRAZOLE
     Route: 048
  10. ADALAT [Concomitant]
     Active Substance: NIFEDIPINE
     Route: 048

REACTIONS (2)
  - Pneumonia [Recovered/Resolved with Sequelae]
  - Pneumonitis [Recovering/Resolving]

NARRATIVE: CASE EVENT DATE: 20190310
